FAERS Safety Report 14740594 (Version 1)
Quarter: 2018Q2

REPORT INFORMATION
  Report Type: Spontaneous
  Country: CZ (occurrence: CZ)
  Receive Date: 20180410
  Receipt Date: 20180410
  Transmission Date: 20180711
  Serious: Yes (Other)
  Sender: FDA-Public Use
  Company Number: CZ-LPDUSPRD-20180516

PATIENT
  Age: 38 Year
  Sex: Female

DRUGS (4)
  1. FERINJECT [Suspect]
     Active Substance: FERRIC CARBOXYMALTOSE
     Dosage: 1994: 1 GM, 1 IN 1 WK
     Route: 065
  2. VELPHORO [Suspect]
     Active Substance: FERRIC OXYHYDROXIDE
     Dosage: 1994: 1 GM, 1 IN 1 WK
     Route: 065
  3. VENOFER [Suspect]
     Active Substance: IRON SUCROSE
     Dosage: 1994: 1 GM, 1 IN 1 WK
     Route: 065
  4. MALTOFER [Suspect]
     Active Substance: IRON POLYMALTOSE
     Dosage: 1994: 1 GM, 1 IN 1 WK
     Route: 048

REACTIONS (4)
  - Diarrhoea [Unknown]
  - Vomiting [Unknown]
  - Arthralgia [Unknown]
  - Gastric ulcer [Unknown]

NARRATIVE: CASE EVENT DATE: 1994
